FAERS Safety Report 8818650 (Version 3)
Quarter: 2016Q3

REPORT INFORMATION
  Report Type: Report from Study
  Country: DK (occurrence: DK)
  Receive Date: 20121001
  Receipt Date: 20160913
  Transmission Date: 20161109
  Serious: Yes (Other)
  Sender: FDA-Public Use
  Company Number: DK-ROCHE-1137661

PATIENT

DRUGS (4)
  1. GEMCITABINE [Suspect]
     Active Substance: GEMCITABINE\GEMCITABINE HYDROCHLORIDE
     Indication: BILE DUCT CANCER
     Route: 065
  2. PANITUMUMAB [Suspect]
     Active Substance: PANITUMUMAB
     Indication: BILE DUCT CANCER
     Route: 042
  3. CAPECITABINE. [Suspect]
     Active Substance: CAPECITABINE
     Indication: BILE DUCT CANCER
     Route: 065
  4. OXALIPLATIN. [Suspect]
     Active Substance: OXALIPLATIN
     Indication: BILE DUCT CANCER
     Route: 065

REACTIONS (13)
  - Rash [Unknown]
  - Vomiting [Unknown]
  - Diarrhoea [Unknown]
  - Palmar-plantar erythrodysaesthesia syndrome [Unknown]
  - Pain [Unknown]
  - Hyperglycaemia [Unknown]
  - Febrile neutropenia [Unknown]
  - Infection [Unknown]
  - Peripheral motor neuropathy [Unknown]
  - Nausea [Unknown]
  - Stomatitis [Unknown]
  - Peripheral sensory neuropathy [Unknown]
  - Urticaria [Unknown]
